FAERS Safety Report 18282200 (Version 1)
Quarter: 2020Q3

REPORT INFORMATION
  Report Type: Spontaneous
  Country: US (occurrence: US)
  Receive Date: 20200918
  Receipt Date: 20200918
  Transmission Date: 20201103
  Serious: No
  Sender: FDA-Public Use
  Company Number: US-BIOGEN-2019BI00691662

PATIENT
  Sex: Female

DRUGS (5)
  1. TICLOPIDINE HCL [Concomitant]
     Active Substance: TICLOPIDINE HYDROCHLORIDE
     Route: 050
  2. TOPIRAMATE. [Concomitant]
     Active Substance: TOPIRAMATE
     Route: 050
  3. TECFIDERA [Suspect]
     Active Substance: DIMETHYL FUMARATE
     Indication: MULTIPLE SCLEROSIS
     Dosage: TAKE 1 CAPSULE (240MG)  BY MOUTH TWICE DAILY
     Route: 050
  4. TIZANIDINE HCL [Concomitant]
     Active Substance: TIZANIDINE HYDROCHLORIDE
     Route: 050
  5. TECFIDERA [Suspect]
     Active Substance: DIMETHYL FUMARATE
     Route: 065
     Dates: start: 20170131

REACTIONS (1)
  - Alopecia [Unknown]
